FAERS Safety Report 5247834-1 (Version None)
Quarter: 2007Q1

REPORT INFORMATION
  Report Type: 
  Country: None (occurrence: None)
  Receive Date: 20070223
  Receipt Date: 20070206
  Transmission Date: 20070707
  Serious: Yes (Hospitalization, Other)
  Sender: FDA-Public Use
  Company Number: PHBS2007JP01637

PATIENT
  Age: 49 Year
  Sex: Male

DRUGS (7)
  1. LUDIOMIL [Suspect]
     Indication: DEPRESSION
     Dosage: 50 MG/DAY
     Route: 065
     Dates: start: 19900101
  2. LUDIOMIL [Suspect]
     Dosage: 100 MG/DAY
     Route: 065
     Dates: start: 19960101
  3. TRAZODONE HYDROCHLORIDE [Concomitant]
     Indication: DEPRESSION
     Dosage: 100 MG/DAY
     Route: 065
     Dates: start: 19900101
  4. SULPIRIDE [Concomitant]
     Indication: DEPRESSION
     Dosage: 600 MG/DAY
     Route: 065
     Dates: start: 19900101
  5. SULPIRIDE [Concomitant]
     Dosage: 1200 MG/DAY
     Route: 065
     Dates: start: 19960101
  6. AMITRIPTYLINE HYDROCHLORIDE [Concomitant]
     Indication: DEPRESSION
     Dosage: 75 MG/DAY
     Route: 065
     Dates: start: 19900101
  7. AMITRIPTYLINE HYDROCHLORIDE [Concomitant]
     Dosage: 150 MG/DAY
     Route: 065
     Dates: start: 19960101

REACTIONS (29)
  - ANAEMIA [None]
  - ASPARTATE AMINOTRANSFERASE INCREASED [None]
  - BASE EXCESS NEGATIVE [None]
  - BLOOD BICARBONATE DECREASED [None]
  - BLOOD CREATINE PHOSPHOKINASE INCREASED [None]
  - BLOOD CREATININE INCREASED [None]
  - BLOOD LACTATE DEHYDROGENASE INCREASED [None]
  - BLOOD PRESSURE DECREASED [None]
  - BLOOD UREA INCREASED [None]
  - BLOOD URINE PRESENT [None]
  - DELIRIUM [None]
  - DEPRESSED LEVEL OF CONSCIOUSNESS [None]
  - DEPRESSION [None]
  - HYPERHIDROSIS [None]
  - MUSCULAR WEAKNESS [None]
  - MYOGLOBIN BLOOD INCREASED [None]
  - MYOGLOBIN URINE PRESENT [None]
  - NEUROLEPTIC MALIGNANT SYNDROME [None]
  - OEDEMA PERIPHERAL [None]
  - PCO2 DECREASED [None]
  - PO2 DECREASED [None]
  - PROTEIN URINE PRESENT [None]
  - PYREXIA [None]
  - QUADRIPLEGIA [None]
  - RALES [None]
  - RENAL FAILURE ACUTE [None]
  - RESPIRATORY DISORDER [None]
  - RHABDOMYOLYSIS [None]
  - URINE OUTPUT DECREASED [None]
